FAERS Safety Report 8609855 (Version 4)
Quarter: 2012Q4

REPORT INFORMATION
  Report Type: 
  Country: US (occurrence: US)
  Receive Date: 20120612
  Receipt Date: 20121031
  Transmission Date: 20130627
  Serious: Yes (Disabling)
  Sender: FDA-Public Use
  Company Number: US-JNJFOC-20120601083

PATIENT
  Age: 69 None
  Sex: Male
  Weight: 81.65 kg

DRUGS (16)
  1. REMICADE [Suspect]
     Indication: CROHN^S DISEASE
     Route: 042
     Dates: start: 201112
  2. REMICADE [Suspect]
     Indication: CROHN^S DISEASE
     Route: 042
     Dates: start: 201205
  3. REMICADE [Suspect]
     Indication: CROHN^S DISEASE
     Route: 042
     Dates: start: 2012, end: 20120330
  4. CARDIZEM [Concomitant]
     Route: 065
  5. LIPITOR [Concomitant]
     Route: 048
  6. NEXIUM [Concomitant]
     Route: 048
  7. NADOLOL [Concomitant]
     Route: 048
  8. COUMADIN [Concomitant]
     Route: 065
  9. LOTREL [Concomitant]
     Route: 065
  10. TRICOR [Concomitant]
     Route: 065
  11. SOTALOL [Concomitant]
     Route: 065
  12. SIMVASTATIN [Concomitant]
     Route: 065
  13. FENOFIBRATE [Concomitant]
     Route: 065
  14. WARFARIN [Concomitant]
     Route: 065
  15. LISINOPRIL/HYDROCHLOROTHIAZIDE [Concomitant]
     Route: 065
  16. FAMOTIDINE [Concomitant]
     Route: 065

REACTIONS (2)
  - Lupus-like syndrome [Recovering/Resolving]
  - Drug ineffective [Not Recovered/Not Resolved]
